FAERS Safety Report 25159597 (Version 2)
Quarter: 2025Q2

REPORT INFORMATION
  Report Type: Spontaneous
  Country: US (occurrence: US)
  Receive Date: 20250404
  Receipt Date: 20250516
  Transmission Date: 20250717
  Serious: No
  Sender: NOVARTIS
  Company Number: US-002147023-NVSC2025US056209

PATIENT

DRUGS (1)
  1. COSENTYX [Suspect]
     Active Substance: SECUKINUMAB
     Indication: Hidradenitis
     Dosage: UNK UNK, Q2MO
     Route: 065

REACTIONS (3)
  - Candida infection [Unknown]
  - Leukoplakia [Unknown]
  - Lymphadenopathy [Unknown]
